FAERS Safety Report 7948252-5 (Version None)
Quarter: 2011Q4

REPORT INFORMATION
  Report Type: 
  Country: None (occurrence: None)
  Receive Date: 20111130
  Receipt Date: 20111123
  Transmission Date: 20120403
  Serious: Yes (Hospitalization)
  Sender: FDA-Public Use
  Company Number: BE-AMGEN-BELSP2011062210

PATIENT
  Age: 76 Year
  Sex: Male
  Weight: 53.7 kg

DRUGS (6)
  1. CYCLOPHOSPHAMIDE [Suspect]
     Indication: B-CELL LYMPHOMA
     Dosage: 1170 MG, UNK
     Route: 042
     Dates: start: 20111004
  2. PREDNISONE TAB [Suspect]
     Indication: B-CELL LYMPHOMA
     Dosage: 100 MG, UNK
     Route: 048
     Dates: start: 20111004
  3. NEUPOGEN [Suspect]
     Indication: B-CELL LYMPHOMA
     Dosage: 6 MG, UNK
     Dates: start: 20111005
  4. VINCRISTINE [Suspect]
     Indication: B-CELL LYMPHOMA
     Dosage: UNK
     Route: 042
     Dates: start: 20111004
  5. RITUXIMAB [Suspect]
     Indication: B-CELL LYMPHOMA
     Dosage: 608 MG, UNK
     Route: 042
     Dates: start: 20111004
  6. DOXORUBICIN HCL [Suspect]
     Indication: B-CELL LYMPHOMA
     Dosage: 78 MG, UNK
     Route: 042
     Dates: start: 20111004

REACTIONS (1)
  - SMALL INTESTINAL OBSTRUCTION [None]
